FAERS Safety Report 16582088 (Version 2)
Quarter: 2019Q3

REPORT INFORMATION
  Report Type: Spontaneous
  Country: DE (occurrence: DE)
  Receive Date: 20190717
  Receipt Date: 20190917
  Transmission Date: 20191004
  Serious: Yes (Hospitalization)
  Sender: FDA-Public Use
  Company Number: PHHY2019DE162202

PATIENT
  Age: 59 Year
  Sex: Male

DRUGS (2)
  1. COSENTYX [Suspect]
     Active Substance: SECUKINUMAB
     Indication: PSORIASIS
     Dosage: 150 MG, UNK
     Route: 065
     Dates: start: 20190322, end: 201905
  2. BISOPROLOL [Concomitant]
     Active Substance: BISOPROLOL
     Indication: PRODUCT USED FOR UNKNOWN INDICATION
     Route: 065

REACTIONS (17)
  - Nervous system disorder [Not Recovered/Not Resolved]
  - Amyotrophy [Unknown]
  - Sensitisation [Recovering/Resolving]
  - Neuropathic muscular atrophy [Recovering/Resolving]
  - Protein total increased [Recovering/Resolving]
  - Pain [Recovering/Resolving]
  - Cervicobrachial syndrome [Recovering/Resolving]
  - Paraesthesia [Unknown]
  - Dysaesthesia [Unknown]
  - Muscular weakness [Unknown]
  - Paresis [Recovering/Resolving]
  - Blood brain barrier defect [Recovering/Resolving]
  - Neuralgic amyotrophy [Recovered/Resolved]
  - CSF cell count abnormal [Recovering/Resolving]
  - Blood albumin increased [Recovering/Resolving]
  - Brachial plexopathy [Recovering/Resolving]
  - Hypoaesthesia [Unknown]

NARRATIVE: CASE EVENT DATE: 20190427
